FAERS Safety Report 18142627 (Version 3)
Quarter: 2020Q4

REPORT INFORMATION
  Report Type: Report from Study
  Country: BE (occurrence: BE)
  Receive Date: 20200813
  Receipt Date: 20201019
  Transmission Date: 20210113
  Serious: Yes (Hospitalization)
  Sender: FDA-Public Use
  Company Number: BE-BEH-2020120867

PATIENT
  Age: 51 Year
  Sex: Female

DRUGS (1)
  1. HIZENTRA [Suspect]
     Active Substance: HUMAN IMMUNOGLOBULIN G
     Dosage: 12 GRAM (60 ML), QW
     Route: 058

REACTIONS (8)
  - Coma [Recovering/Resolving]
  - Hyperhidrosis [Unknown]
  - Hospitalisation [Unknown]
  - Oropharyngeal pain [Unknown]
  - Therapy cessation [Unknown]
  - Pyrexia [Unknown]
  - No adverse event [Unknown]
  - Hospitalisation [Recovered/Resolved]

NARRATIVE: CASE EVENT DATE: 202009
